FAERS Safety Report 21131675 (Version 1)
Quarter: 2022Q3

REPORT INFORMATION
  Report Type: Spontaneous
  Country: IN (occurrence: IN)
  Receive Date: 20220726
  Receipt Date: 20220726
  Transmission Date: 20221026
  Serious: Yes (Death, Other)
  Sender: FDA-Public Use
  Company Number: IN-GLENMARK PHARMACEUTICALS-2022GMK073875

PATIENT

DRUGS (1)
  1. AXITINIB [Suspect]
     Active Substance: AXITINIB
     Indication: Product used for unknown indication
     Dosage: 1 DOSAGE FORM, QD (1 TAB PER DAY)
     Route: 048
     Dates: start: 202205

REACTIONS (5)
  - Brain neoplasm malignant [Fatal]
  - Lip and/or oral cavity cancer [Fatal]
  - Bone cancer [Fatal]
  - Renal cancer [Fatal]
  - Lung neoplasm malignant [Fatal]
